FAERS Safety Report 8541568-3 (Version None)
Quarter: 2012Q3

REPORT INFORMATION
  Report Type: 
  Country: None (occurrence: None)
  Receive Date: 20120726
  Receipt Date: 20120405
  Transmission Date: 20120928
  Serious: No
  Sender: FDA-Public Use
  Company Number: US-MUTUAL PHARMACEUTICAL COMPANY, INC.-CLHC20120026

PATIENT
  Age: 70 Year
  Sex: Female

DRUGS (1)
  1. COLCHICINE [Suspect]
     Indication: PRODUCT USED FOR UNKNOWN INDICATION
     Route: 048

REACTIONS (1)
  - AGEUSIA [None]
